FAERS Safety Report 9181113 (Version 2)
Quarter: 2013Q1

REPORT INFORMATION
  Report Type: Spontaneous
  Country: US (occurrence: US)
  Receive Date: 20130322
  Receipt Date: 20130325
  Transmission Date: 20140127
  Serious: Yes (Hospitalization)
  Sender: FDA-Public Use
  Company Number: US-BAYER-2013-034687

PATIENT
  Age: 41 Year
  Sex: Female

DRUGS (6)
  1. YAZ [Suspect]
  2. GIANVI [Suspect]
     Indication: CONTRACEPTION
  3. YASMIN [Suspect]
  4. XOPENEX [Concomitant]
  5. PRILOSEC [Concomitant]
     Dosage: OCCASIONAL
  6. FLOVENT [Concomitant]
     Dosage: 220 MCG

REACTIONS (1)
  - Pulmonary embolism [Recovering/Resolving]
